FAERS Safety Report 21507922 (Version 1)
Quarter: 2022Q4

REPORT INFORMATION
  Report Type: Spontaneous
  Country: US (occurrence: None)
  Receive Date: 20221025
  Receipt Date: 20221025
  Transmission Date: 20230113
  Serious: No
  Sender: FDA-Public Use
  Company Number: None

PATIENT
  Age: 55 Year
  Sex: Male
  Weight: 103.5 kg

DRUGS (3)
  1. TAMSULOSIN HYDROCHLORIDE [Suspect]
     Active Substance: TAMSULOSIN HYDROCHLORIDE
     Indication: Urine flow decreased
     Dosage: FREQUENCY : TWICE A DAY;?
     Route: 048
  2. FLOMAX [Concomitant]
     Active Substance: TAMSULOSIN HYDROCHLORIDE
  3. multi vitamin [Concomitant]

REACTIONS (5)
  - Dysuria [None]
  - Painful erection [None]
  - Urethral stenosis [None]
  - Testicular pain [None]
  - Testicular swelling [None]

NARRATIVE: CASE EVENT DATE: 20221023
